FAERS Safety Report 17707806 (Version 1)
Quarter: 2020Q2

REPORT INFORMATION
  Report Type: Spontaneous
  Country: AU (occurrence: AU)
  Receive Date: 20200424
  Receipt Date: 20200424
  Transmission Date: 20200714
  Serious: Yes (Hospitalization)
  Sender: FDA-Public Use
  Company Number: AU-AMNEAL PHARMACEUTICALS-2020-AMRX-01198

PATIENT
  Age: 36 Year
  Sex: Female

DRUGS (1)
  1. FLECAINIDE ACETATE. [Suspect]
     Active Substance: FLECAINIDE ACETATE
     Indication: SUPRAVENTRICULAR TACHYCARDIA
     Dosage: 100 MILLIGRAM, AS NEEDED
     Route: 065

REACTIONS (3)
  - Toxicity to various agents [Recovered/Resolved]
  - Device malfunction [Recovered/Resolved]
  - Cardiogenic shock [Recovered/Resolved]
